FAERS Safety Report 15599731 (Version 3)
Quarter: 2018Q4

REPORT INFORMATION
  Report Type: Report from Study
  Country: US (occurrence: US)
  Receive Date: 20181108
  Receipt Date: 20181227
  Transmission Date: 20190205
  Serious: Yes (Hospitalization)
  Sender: FDA-Public Use
  Company Number: US-ACTELION-A-US2018-166700

PATIENT
  Age: 49 Year
  Sex: Female
  Weight: 74.83 kg

DRUGS (3)
  1. WARFARIN [Concomitant]
     Active Substance: WARFARIN
  2. OPSUMIT [Suspect]
     Active Substance: MACITENTAN
     Indication: PULMONARY ARTERIAL HYPERTENSION
     Dosage: 10 MG, QD
     Route: 048
  3. REVATIO [Concomitant]
     Active Substance: SILDENAFIL CITRATE

REACTIONS (16)
  - Vomiting [Unknown]
  - Seizure [Unknown]
  - Nasopharyngitis [Unknown]
  - Asthenia [Unknown]
  - Dizziness [Unknown]
  - Pulmonary embolism [Unknown]
  - Fatigue [Unknown]
  - Unevaluable event [Unknown]
  - Implantable defibrillator insertion [Unknown]
  - Dyspnoea [Unknown]
  - Syncope [Unknown]
  - Head injury [Unknown]
  - Thrombosis [Unknown]
  - Cardiac arrest [Unknown]
  - Fall [Unknown]
  - Headache [Unknown]
